FAERS Safety Report 7463901-6 (Version None)
Quarter: 2011Q2

REPORT INFORMATION
  Report Type: 
  Country: None (occurrence: None)
  Receive Date: 20110506
  Receipt Date: 20110502
  Transmission Date: 20111010
  Serious: Yes (Hospitalization)
  Sender: FDA-Public Use
  Company Number: SE-SANOFI-AVENTIS-2011SA026780

PATIENT
  Sex: Female

DRUGS (4)
  1. NOVORAPID [Concomitant]
     Indication: TYPE 1 DIABETES MELLITUS
     Route: 065
     Dates: start: 20110201, end: 20110401
  2. INSULIN [Suspect]
     Indication: TYPE 1 DIABETES MELLITUS
     Route: 065
  3. LANTUS [Suspect]
     Indication: TYPE 1 DIABETES MELLITUS
     Dosage: DOSE:7 UNIT(S)
     Route: 058
  4. HUMALOG [Concomitant]
     Indication: PRODUCT USED FOR UNKNOWN INDICATION
     Route: 065

REACTIONS (11)
  - HYPERHIDROSIS [None]
  - FEELING COLD [None]
  - PAIN [None]
  - PRURITUS [None]
  - FATIGUE [None]
  - SWELLING FACE [None]
  - PRURITUS GENERALISED [None]
  - SKIN DISCOLOURATION [None]
  - POOR PERIPHERAL CIRCULATION [None]
  - SKIN SWELLING [None]
  - ASTHENIA [None]
